FAERS Safety Report 10127666 (Version 2)
Quarter: 2014Q2

REPORT INFORMATION
  Report Type: Spontaneous
  Country: RU (occurrence: RU)
  Receive Date: 20140428
  Receipt Date: 20140428
  Transmission Date: 20141212
  Serious: Yes (Other)
  Sender: FDA-Public Use
  Company Number: RU-MERCK-1402RUS000321

PATIENT
  Sex: Female

DRUGS (1)
  1. ISENTRESS [Suspect]
     Dosage: UNK
     Route: 048

REACTIONS (2)
  - Abortion [Recovered/Resolved]
  - Exposure during pregnancy [Recovered/Resolved]
